FAERS Safety Report 8925556 (Version 1)
Quarter: 2012Q4

REPORT INFORMATION
  Report Type: 
  Country: US (occurrence: US)
  Receive Date: 20121126
  Receipt Date: 20121126
  Transmission Date: 20130627
  Serious: Yes (Other)
  Sender: FDA-Public Use
  Company Number: US-BAYER-2012-120660

PATIENT
  Age: 35 Year
  Sex: Female

DRUGS (14)
  1. YAZ [Suspect]
  2. YASMIN [Suspect]
  3. HYDROCHLOROTHIAZIDE [Concomitant]
     Dosage: 25 mg, UNK
     Dates: start: 20080419
  4. HYDROCHLOROTHIAZIDE [Concomitant]
     Dosage: 25 mg, UNK
     Dates: start: 20080527
  5. HYDROCHLOROTHIAZIDE [Concomitant]
     Dosage: 25 mg, UNK
     Dates: start: 20080609
  6. AMLODIPINE BESYLATE [Concomitant]
     Dosage: 2.5 mg, UNK
     Dates: start: 20080419
  7. AMLODIPINE BESYLATE [Concomitant]
     Dosage: 2.5 mg, UNK
     Dates: start: 20080527
  8. AMLODIPINE BESYLATE [Concomitant]
     Dosage: 2.5 mg, UNK
     Dates: start: 20080609
  9. IBUPROFEN [Concomitant]
     Dosage: 800 mg, UNK
     Dates: start: 20080616
  10. MOTRIN [Concomitant]
     Indication: HEADACHE
  11. AMLODIPINE [Concomitant]
  12. FLUTICASONE PROPIONATE [Concomitant]
     Route: 045
  13. IRON [Concomitant]
  14. VITAMIN C [Concomitant]

REACTIONS (1)
  - Deep vein thrombosis [None]
